FAERS Safety Report 5289333-7 (Version None)
Quarter: 2007Q2

REPORT INFORMATION
  Report Type: 
  Country: None (occurrence: None)
  Receive Date: 20070404
  Receipt Date: 20070404
  Transmission Date: 20071010
  Serious: Yes (Other)
  Sender: FDA-Public Use
  Company Number: None

PATIENT
  Age: 49 Year
  Sex: Male

DRUGS (1)
  1. MORPHINE [Suspect]
     Indication: PAIN
     Dosage: 200MG   Q12H   PO
     Route: 048
     Dates: start: 20060901, end: 20060902

REACTIONS (2)
  - DYSPNOEA [None]
  - RESPIRATORY DEPRESSION [None]
